FAERS Safety Report 17889633 (Version 1)
Quarter: 2020Q2

REPORT INFORMATION
  Report Type: Spontaneous
  Country: US (occurrence: US)
  Receive Date: 20200612
  Receipt Date: 20200612
  Transmission Date: 20200714
  Serious: No
  Sender: FDA-Public Use
  Company Number: US-PFIZER INC-2020229728

PATIENT
  Age: 63 Year
  Sex: Female
  Weight: 86.17 kg

DRUGS (1)
  1. IBRANCE [Suspect]
     Active Substance: PALBOCICLIB
     Indication: BREAST CANCER FEMALE
     Dosage: 75 MG, ONCE DAILY FOR 21 DAYS
     Route: 048
     Dates: start: 20191129

REACTIONS (1)
  - Weight increased [Unknown]
